FAERS Safety Report 9383457 (Version 1)
Quarter: 2013Q3

REPORT INFORMATION
  Report Type: Spontaneous
  Country: CH (occurrence: CH)
  Receive Date: 20130704
  Receipt Date: 20130704
  Transmission Date: 20140515
  Serious: Yes (Other)
  Sender: FDA-Public Use
  Company Number: CH-PFIZER INC-2013196611

PATIENT
  Age: 49 Year
  Sex: Female
  Weight: 62 kg

DRUGS (2)
  1. SALAZOPYRIN [Suspect]
     Indication: SPONDYLITIS
     Dosage: 500 MG, 4X/DAY
     Route: 048
     Dates: start: 201109, end: 20130517
  2. BRUFEN [Concomitant]
     Indication: PAIN
     Dosage: 400 MG, FREQUENCY UNKNOWN
     Route: 048

REACTIONS (5)
  - Arthralgia [Recovered/Resolved]
  - Face oedema [Recovered/Resolved]
  - Swelling [Recovered/Resolved]
  - Erythema [Recovered/Resolved]
  - Pain [Recovered/Resolved]
